FAERS Safety Report 5406026-3 (Version None)
Quarter: 2007Q3

REPORT INFORMATION
  Report Type: 
  Country: None (occurrence: None)
  Receive Date: 20070806
  Receipt Date: 20070730
  Transmission Date: 20080115
  Serious: Yes (Other)
  Sender: FDA-Public Use
  Company Number: A0666921A

PATIENT
  Age: 52 Year
  Sex: Female

DRUGS (4)
  1. LOTRONEX [Suspect]
     Indication: IRRITABLE BOWEL SYNDROME
     Dosage: .5MG VARIABLE DOSE
     Route: 048
     Dates: start: 20070201, end: 20070727
  2. ANTIDEPRESSANT [Concomitant]
  3. PRILOSEC [Concomitant]
  4. OMEPRAZOLE [Concomitant]

REACTIONS (5)
  - ABDOMINAL PAIN [None]
  - BACK PAIN [None]
  - CONSTIPATION [None]
  - MALAISE [None]
  - NEPHROLITHIASIS [None]
